FAERS Safety Report 5144730-5 (Version None)
Quarter: 2006Q4

REPORT INFORMATION
  Report Type: 
  Country: None (occurrence: None)
  Receive Date: 20061106
  Receipt Date: 20061023
  Transmission Date: 20070319
  Serious: Yes (Hospitalization)
  Sender: FDA-Public Use
  Company Number: AR-ELI_LILLY_AND_COMPANY-AR200610004292

PATIENT
  Age: 60 Year
  Sex: Male

DRUGS (5)
  1. CYMBALTA [Suspect]
     Indication: DEPRESSION
     Route: 048
     Dates: start: 20061003, end: 20061010
  2. VENLAFAXINE HYDROCHLORIDE [Concomitant]
     Indication: DEPRESSION
     Dosage: 75 MG, DAILY (1/D)
     Route: 048
     Dates: start: 20020101, end: 20061002
  3. MIRTAZAPINE [Concomitant]
     Indication: DEPRESSION
     Dosage: 45 MG, DAILY (1/D)
     Route: 048
     Dates: start: 20020101, end: 20061002
  4. ATENOLOL [Concomitant]
     Indication: HYPERTENSION
     Route: 048
  5. TELMISARTAN [Concomitant]
     Indication: HYPERTENSION
     Route: 048

REACTIONS (1)
  - HYPERTENSION [None]
